FAERS Safety Report 12765455 (Version 1)
Quarter: 2016Q3

REPORT INFORMATION
  Report Type: Report from Study
  Country: CN (occurrence: CN)
  Receive Date: 20160921
  Receipt Date: 20160921
  Transmission Date: 20161109
  Serious: Yes (Death, Other)
  Sender: FDA-Public Use
  Company Number: CN-ROCHE-1833033

PATIENT
  Age: 64 Year
  Sex: Male

DRUGS (2)
  1. ALTEPLASE [Suspect]
     Active Substance: ALTEPLASE
     Indication: ISCHAEMIC STROKE
     Dosage: 10% IN A BOLUS IN 1 MINUTE.
     Route: 040
  2. ALTEPLASE [Suspect]
     Active Substance: ALTEPLASE
     Dosage: REAMINING 90% IN A 60-MINUTE INFUSION.
     Route: 042

REACTIONS (2)
  - Haemorrhagic transformation stroke [Unknown]
  - Death [Fatal]
